FAERS Safety Report 24955544 (Version 4)
Quarter: 2025Q4

REPORT INFORMATION
  Report Type: Report from Study
  Country: US (occurrence: US)
  Receive Date: 20250211
  Receipt Date: 20251002
  Transmission Date: 20260117
  Serious: Yes (Other)
  Sender: TAKEDA
  Company Number: US-TAKEDA-US202030663

PATIENT
  Age: 59 Year
  Sex: Female

DRUGS (2)
  1. HUMAN IMMUNOGLOBULIN G [Suspect]
     Active Substance: HUMAN IMMUNOGLOBULIN G
     Indication: Primary immunodeficiency syndrome
     Dosage: UNK
  2. COVID-19 VACCINE NOS [Suspect]
     Active Substance: COVID-19 VACCINE
     Indication: Immunisation
     Dosage: UNK

REACTIONS (16)
  - Myocardial injury [Unknown]
  - Systemic lupus erythematosus [Unknown]
  - Platelet count abnormal [Unknown]
  - Peripheral venous disease [Unknown]
  - COVID-19 [Unknown]
  - Immunisation reaction [Unknown]
  - Weight increased [Unknown]
  - Glucose tolerance impaired [Unknown]
  - Blood sodium decreased [Unknown]
  - Fall [Unknown]
  - Infusion site bruising [Unknown]
  - Insomnia [Unknown]
  - Lymphadenopathy [Unknown]
  - Malaise [Unknown]
  - Fatigue [Unknown]
  - Headache [Unknown]

NARRATIVE: CASE EVENT DATE: 20240912
